FAERS Safety Report 15257663 (Version 2)
Quarter: 2018Q4

REPORT INFORMATION
  Report Type: Spontaneous
  Country: US (occurrence: US)
  Receive Date: 20180808
  Receipt Date: 20181015
  Transmission Date: 20190204
  Serious: Yes (Other)
  Sender: FDA-Public Use
  Company Number: US-PRINSTON PHARMACEUTICAL INC.-2018PRN00666

PATIENT
  Sex: Male

DRUGS (3)
  1. VALSARTAN. [Suspect]
     Active Substance: VALSARTAN
     Indication: HYPERTENSION
     Dosage: 160 MG, 1X/DAY
     Route: 048
     Dates: start: 20180301, end: 2018
  2. VALSARTAN. [Suspect]
     Active Substance: VALSARTAN
     Indication: RENAL DISORDER
  3. UNKNOWN ALLERGY MEDICATION [Concomitant]

REACTIONS (31)
  - Asthenia [Unknown]
  - Abdominal discomfort [Not Recovered/Not Resolved]
  - Eye discharge [Not Recovered/Not Resolved]
  - Feeling abnormal [Unknown]
  - Constipation [Not Recovered/Not Resolved]
  - Sleep disorder [Unknown]
  - Vision blurred [Recovering/Resolving]
  - Anxiety [Unknown]
  - Malaise [Unknown]
  - Dyspnoea [Recovering/Resolving]
  - Yellow skin [Recovering/Resolving]
  - Glucose tolerance impaired [Not Recovered/Not Resolved]
  - Scab [Not Recovered/Not Resolved]
  - Chronic obstructive pulmonary disease [Unknown]
  - Chest pain [Recovered/Resolved]
  - Eye swelling [Not Recovered/Not Resolved]
  - Nausea [Not Recovered/Not Resolved]
  - Nasopharyngitis [Not Recovered/Not Resolved]
  - Eye disorder [Not Recovered/Not Resolved]
  - Productive cough [Recovering/Resolving]
  - Skin burning sensation [Not Recovered/Not Resolved]
  - Blindness [Not Recovered/Not Resolved]
  - Glaucoma [Not Recovered/Not Resolved]
  - Rectal haemorrhage [Not Recovered/Not Resolved]
  - Lacrimation increased [Not Recovered/Not Resolved]
  - Skin irritation [Not Recovered/Not Resolved]
  - Chromaturia [Recovered/Resolved]
  - Pruritus [Not Recovered/Not Resolved]
  - Dry skin [Not Recovered/Not Resolved]
  - Pain of skin [Not Recovered/Not Resolved]
  - Alopecia [Not Recovered/Not Resolved]

NARRATIVE: CASE EVENT DATE: 2018
